FAERS Safety Report 8992109 (Version 1)
Quarter: 2012Q4

REPORT INFORMATION
  Report Type: 
  Country: JP (occurrence: JP)
  Receive Date: 20121231
  Receipt Date: 20121231
  Transmission Date: 20130627
  Serious: Yes (Hospitalization)
  Sender: FDA-Public Use
  Company Number: JP-009507513-1212JPN009564

PATIENT
  Age: 78 Year
  Sex: Female

DRUGS (5)
  1. JANUVIA TABLETS 50MG [Suspect]
     Indication: DIABETES MELLITUS
     Dosage: 50 mg, qd
     Route: 048
     Dates: start: 20121031, end: 20121219
  2. PREMINENT TABLETS [Concomitant]
     Indication: HYPERTENSION
     Dosage: Daily dosage unknown
     Route: 048
     Dates: start: 200905
  3. PREDNISOLONE [Concomitant]
     Indication: TAKAYASU^S ARTERITIS
     Dosage: 50 mg, qd
     Route: 048
     Dates: start: 200905
  4. LIPITOR [Concomitant]
     Indication: DYSLIPIDAEMIA
     Dosage: 5 mg, qd
     Dates: start: 200905
  5. MAINHEART [Concomitant]
     Dosage: 0.5 mg, UNK
     Route: 048
     Dates: start: 200905

REACTIONS (1)
  - Tuberculosis [Unknown]
